FAERS Safety Report 5838255-9 (Version None)
Quarter: 2008Q3

REPORT INFORMATION
  Report Type: 
  Country: None (occurrence: None)
  Receive Date: 20080808
  Receipt Date: 20080731
  Transmission Date: 20090109
  Serious: Yes (Hospitalization, Other)
  Sender: FDA-Public Use
  Company Number: US-AVENTIS-200817275GDDC

PATIENT
  Age: 69 Year
  Sex: Male
  Weight: 69.8 kg

DRUGS (8)
  1. TAXOTERE [Suspect]
     Indication: HEAD AND NECK CANCER
     Route: 042
     Dates: start: 20080610, end: 20080610
  2. FLUOROURACIL [Suspect]
     Indication: HEAD AND NECK CANCER
     Route: 042
     Dates: start: 20080610, end: 20080610
  3. CISPLATIN [Suspect]
     Indication: HEAD AND NECK CANCER
     Route: 042
     Dates: start: 20080610, end: 20080610
  4. PALONOSETRON [Concomitant]
     Route: 042
     Dates: start: 20080610, end: 20080610
  5. DEXAMETHASONE [Concomitant]
     Route: 042
     Dates: start: 20080610, end: 20080610
  6. MANNITOL [Concomitant]
     Route: 042
     Dates: start: 20080610, end: 20080610
  7. CIPROFLOXACIN [Concomitant]
     Route: 048
     Dates: start: 20080614
  8. NEULASTA [Concomitant]
     Route: 058
     Dates: start: 20080615, end: 20080615

REACTIONS (11)
  - ASTHENIA [None]
  - BLOOD PHOSPHORUS ABNORMAL [None]
  - BLOOD POTASSIUM ABNORMAL [None]
  - DEEP VEIN THROMBOSIS [None]
  - DEHYDRATION [None]
  - HYPONATRAEMIA [None]
  - HYPOVOLAEMIA [None]
  - NAUSEA [None]
  - NEUTROPENIA [None]
  - ORAL CANDIDIASIS [None]
  - PULMONARY EMBOLISM [None]
